FAERS Safety Report 5990499-1 (Version None)
Quarter: 2008Q4

REPORT INFORMATION
  Report Type: 
  Country: None (occurrence: None)
  Receive Date: 20081209
  Receipt Date: 20081124
  Transmission Date: 20090506
  Serious: Yes (Other)
  Sender: FDA-Public Use
  Company Number: 2008PL000256

PATIENT
  Age: 67 Year
  Sex: Male
  Weight: 92.5338 kg

DRUGS (2)
  1. IMURAN [Suspect]
     Indication: PROPHYLAXIS
     Dosage: 125 MG
     Dates: start: 20080228
  2. REMICADE [Suspect]
     Indication: COLITIS ULCERATIVE
     Dosage: IV
     Route: 042
     Dates: start: 20080625

REACTIONS (6)
  - ANOREXIA [None]
  - FATIGUE [None]
  - FLATULENCE [None]
  - ILL-DEFINED DISORDER [None]
  - LIVER FUNCTION TEST ABNORMAL [None]
  - MIDDLE INSOMNIA [None]
